FAERS Safety Report 9410905 (Version 1)
Quarter: 2013Q3

REPORT INFORMATION
  Report Type: Spontaneous
  Country: GB (occurrence: GB)
  Receive Date: 20130719
  Receipt Date: 20130719
  Transmission Date: 20140515
  Serious: Yes (Death, Other)
  Sender: FDA-Public Use
  Company Number: GB-ASTRAZENECA-2013SE54013

PATIENT
  Sex: Male

DRUGS (3)
  1. TICAGRELOR [Suspect]
     Route: 048
  2. TICAGRELOR [Suspect]
     Route: 048
  3. BIVALIRUDIN [Suspect]
     Route: 065

REACTIONS (3)
  - Death [Fatal]
  - Thrombosis in device [Unknown]
  - Presyncope [Unknown]
